FAERS Safety Report 7456743-9 (Version None)
Quarter: 2011Q2

REPORT INFORMATION
  Report Type: 
  Country: None (occurrence: None)
  Receive Date: 20110503
  Receipt Date: 20110427
  Transmission Date: 20111010
  Serious: Yes (Other)
  Sender: FDA-Public Use
  Company Number: CA-ABBOTT-11P-028-0703150-00

PATIENT
  Sex: Male
  Weight: 82 kg

DRUGS (17)
  1. PANTOPRAZOLE EC [Concomitant]
     Indication: PRODUCT USED FOR UNKNOWN INDICATION
     Route: 048
  2. THIAMINE [Concomitant]
     Indication: VITAMIN SUPPLEMENTATION
     Route: 048
  3. ACETLSALICYLIC ACID EC [Concomitant]
     Indication: ANTICOAGULANT THERAPY
     Route: 048
  4. ACETLSALICYLIC ACID EC [Concomitant]
     Indication: PROPHYLAXIS
  5. APO-WARFARIN [Concomitant]
     Indication: ANTICOAGULANT THERAPY
     Dosage: AT 17H00
     Route: 048
  6. CRESTOR [Concomitant]
     Indication: BLOOD CHOLESTEROL INCREASED
     Route: 048
  7. PLAVIX [Concomitant]
     Indication: ANTICOAGULANT THERAPY
     Route: 048
  8. MAVIK [Suspect]
     Indication: ESSENTIAL HYPERTENSION
     Route: 048
     Dates: start: 20100310, end: 20101201
  9. ALTACE [Concomitant]
     Indication: CARDIAC DISORDER
     Route: 048
  10. TINZAPARIN [Concomitant]
     Indication: PRODUCT USED FOR UNKNOWN INDICATION
     Route: 058
  11. PLAVIX [Concomitant]
     Indication: CORONARY ARTERY THROMBOSIS
  12. PLAVIX [Concomitant]
     Indication: PROPHYLAXIS
  13. LOPRESSOR [Concomitant]
     Indication: CARDIAC DISORDER
     Route: 048
  14. METOPROLOL SUCCINATE [Concomitant]
     Indication: PRODUCT USED FOR UNKNOWN INDICATION
  15. MAVIK [Suspect]
     Dosage: 2 MG
  16. ACETLSALICYLIC ACID EC [Concomitant]
     Indication: CORONARY ARTERY THROMBOSIS
  17. CENTRUM FORTE [Concomitant]
     Indication: VITAMIN SUPPLEMENTATION
     Route: 048

REACTIONS (3)
  - MYOCARDIAL INFARCTION [None]
  - CORONARY ARTERY THROMBOSIS [None]
  - CHEST PAIN [None]
